FAERS Safety Report 8365274-3 (Version None)
Quarter: 2012Q2

REPORT INFORMATION
  Report Type: 
  Country: None (occurrence: None)
  Receive Date: 20120515
  Receipt Date: 20120511
  Transmission Date: 20120825
  Serious: Yes (Other)
  Sender: FDA-Public Use
  Company Number: ADR-2012-00604

PATIENT
  Age: 14 Year
  Sex: Male

DRUGS (1)
  1. LIORESAL [Suspect]
     Indication: CEREBRAL PALSY

REACTIONS (6)
  - IMPLANT SITE PAIN [None]
  - IMPLANT SITE INFECTION [None]
  - CANDIDA TEST POSITIVE [None]
  - MENINGITIS [None]
  - PSEUDOMONAS TEST POSITIVE [None]
  - IMPLANT SITE ERYTHEMA [None]
